FAERS Safety Report 8701307 (Version 2)
Quarter: 2012Q4

REPORT INFORMATION
  Report Type: 
  Country: US (occurrence: US)
  Receive Date: 20120802
  Receipt Date: 20121204
  Transmission Date: 20130627
  Serious: No
  Sender: FDA-Public Use
  Company Number: US-AMGEN-USASP2012047046

PATIENT
  Age: 50 Year
  Sex: Female
  Weight: 82.09 kg

DRUGS (5)
  1. ENBREL [Suspect]
     Indication: RHEUMATOID ARTHRITIS
     Dosage: 50 mg, qwk
     Dates: start: 20120620, end: 20120925
  2. TRAMADOL [Concomitant]
     Dosage: 50 mg, qd
     Route: 048
  3. NIACIN [Concomitant]
     Dosage: CR 250 mg, qd
     Route: 048
  4. SYNTHROID [Concomitant]
     Dosage: 75 mu, qd
     Route: 048
  5. EXCEDRIN                           /00110301/ [Concomitant]
     Dosage: Extra Strength 250-450
     Route: 048

REACTIONS (2)
  - Vaginal haemorrhage [Recovered/Resolved]
  - Muscle spasms [Not Recovered/Not Resolved]
